FAERS Safety Report 6059316-8 (Version None)
Quarter: 2009Q1

REPORT INFORMATION
  Report Type: 
  Country: None (occurrence: None)
  Receive Date: 20090130
  Receipt Date: 20090123
  Transmission Date: 20090719
  Serious: Yes (Hospitalization)
  Sender: FDA-Public Use
  Company Number: DE-BRISTOL-MYERS SQUIBB COMPANY-14334973

PATIENT
  Age: 70 Year

DRUGS (4)
  1. CETUXIMAB [Suspect]
     Indication: COLON CANCER
     Dosage: STRENGTH: 5MG/ML
     Route: 042
     Dates: start: 20080513, end: 20080715
  2. OXALIPLATIN [Suspect]
     Indication: COLON CANCER
     Route: 042
     Dates: start: 20080513, end: 20080708
  3. FLUOROURACIL [Suspect]
     Indication: COLON CANCER
     Route: 042
     Dates: start: 20080513, end: 20080709
  4. FOLINIC ACID [Suspect]
     Indication: COLON CANCER
     Dosage: RECENT INFUSION 09-JUL-2008
     Route: 042
     Dates: start: 20080513, end: 20080709

REACTIONS (12)
  - ASTHENIA [None]
  - BACTERIA URINE IDENTIFIED [None]
  - CARDIOVASCULAR INSUFFICIENCY [None]
  - CIRCULATORY COLLAPSE [None]
  - CYSTITIS [None]
  - DIARRHOEA [None]
  - ENTEROBACTER INFECTION [None]
  - KLEBSIELLA INFECTION [None]
  - NAUSEA [None]
  - SEPSIS [None]
  - SERRATIA INFECTION [None]
  - STAPHYLOCOCCAL INFECTION [None]
